FAERS Safety Report 6714428-8 (Version None)
Quarter: 2010Q2

REPORT INFORMATION
  Report Type: 
  Country: None (occurrence: None)
  Receive Date: 20100506
  Receipt Date: 20100428
  Transmission Date: 20101027
  Serious: Yes (Other)
  Sender: FDA-Public Use
  Company Number: BR-ABBOTT-10P-020-0638763-00

PATIENT
  Sex: Female
  Weight: 73 kg

DRUGS (10)
  1. HUMIRA [Suspect]
     Indication: RHEUMATOID ARTHRITIS
     Route: 058
     Dates: start: 20071221
  2. PURAN T4 [Concomitant]
     Indication: HYPERTHYROIDISM
     Route: 048
  3. PREDNISONE [Concomitant]
     Indication: RHEUMATOID ARTHRITIS
     Route: 048
  4. METHOTREXATE [Concomitant]
     Indication: RHEUMATOID ARTHRITIS
     Route: 048
  5. PROPRANOLOL [Concomitant]
     Indication: FATIGUE
     Route: 048
  6. CALCIUM W/VITAMIN D [Concomitant]
     Indication: OSTEOPOROSIS
     Route: 048
  7. ALENDRONATE SODIUM [Concomitant]
     Indication: OSTEOPOROSIS
     Route: 048
  8. FLUOXETINE [Concomitant]
     Indication: ANXIETY
     Route: 048
  9. OMEPRAZOLE [Concomitant]
     Indication: GASTRIC DISORDER
     Route: 048
  10. DIAZEPAM [Concomitant]
     Indication: SLEEP DISORDER THERAPY
     Route: 048

REACTIONS (2)
  - INTESTINAL PROLAPSE [None]
  - VULVOVAGINAL HUMAN PAPILLOMA VIRUS INFECTION [None]
